FAERS Safety Report 14914919 (Version 1)
Quarter: 2018Q2

REPORT INFORMATION
  Report Type: Spontaneous
  Country: US (occurrence: US)
  Receive Date: 20180501
  Receipt Date: 20180501
  Transmission Date: 20180711
  Serious: Yes (Life-Threatening)
  Sender: FDA-Public Use
  Company Number: None

PATIENT
  Age: 70 Year
  Sex: Male

DRUGS (2)
  1. MEPERIDINE [Suspect]
     Active Substance: MEPERIDINE
     Indication: SEDATION
     Dates: start: 20171201, end: 20171201
  2. MIDAZOLAM [Suspect]
     Active Substance: MIDAZOLAM HYDROCHLORIDE
     Dates: start: 20171201, end: 20171201

REACTIONS (8)
  - Respiratory rate decreased [None]
  - Respiratory arrest [None]
  - Apnoea [None]
  - Respiratory depression [None]
  - Unresponsive to stimuli [None]
  - Oxygen saturation decreased [None]
  - Hallucination [None]
  - Tachycardia [None]

NARRATIVE: CASE EVENT DATE: 20171201
